FAERS Safety Report 23034496 (Version 1)
Quarter: 2023Q4

REPORT INFORMATION
  Report Type: Spontaneous
  Country: US (occurrence: US)
  Receive Date: 20231005
  Receipt Date: 20231005
  Transmission Date: 20240109
  Serious: No
  Sender: FDA-Public Use
  Company Number: US-TAKEDA-2023TUS095725

PATIENT
  Sex: Female

DRUGS (1)
  1. LIVTENCITY [Suspect]
     Active Substance: MARIBAVIR
     Indication: Liver transplant
     Dosage: 2 DOSAGE FORM, BID
     Route: 048
     Dates: end: 20230818

REACTIONS (1)
  - Gastrointestinal disorder [Unknown]
